FAERS Safety Report 23450259 (Version 3)
Quarter: 2024Q4

REPORT INFORMATION
  Report Type: Report from Study
  Country: CA (occurrence: CA)
  Receive Date: 20240129
  Receipt Date: 20241030
  Transmission Date: 20250115
  Serious: Yes (Other)
  Sender: BIOCON
  Company Number: CA-BIOCON BIOLOGICS LIMITED-BBL2023001735

PATIENT

DRUGS (5)
  1. HULIO [Suspect]
     Active Substance: ADALIMUMAB-FKJP
     Indication: Crohn^s disease
     Dosage: UNK
     Route: 058
     Dates: start: 202307
  2. HULIO [Suspect]
     Active Substance: ADALIMUMAB-FKJP
     Dosage: 40 MG, Q2W
     Route: 058
     Dates: start: 20230810
  3. HULIO [Suspect]
     Active Substance: ADALIMUMAB-FKJP
     Dosage: 40 MG, QW
     Route: 058
     Dates: start: 20230810
  4. HULIO [Suspect]
     Active Substance: ADALIMUMAB-FKJP
     Dosage: 40 MG, QW
     Route: 058
  5. ENTYVIO [Suspect]
     Active Substance: VEDOLIZUMAB
     Indication: Product used for unknown indication
     Dosage: UNK
     Route: 065

REACTIONS (6)
  - Aphthous ulcer [Not Recovered/Not Resolved]
  - Skin squamous cell carcinoma recurrent [Unknown]
  - Influenza [Unknown]
  - Nasopharyngitis [Unknown]
  - Inappropriate schedule of product administration [Unknown]
  - Off label use [Unknown]

NARRATIVE: CASE EVENT DATE: 20230501
